FAERS Safety Report 24659121 (Version 3)
Quarter: 2025Q3

REPORT INFORMATION
  Report Type: Spontaneous
  Country: EU (occurrence: EU)
  Receive Date: 20241125
  Receipt Date: 20250809
  Transmission Date: 20251021
  Serious: Yes (Other)
  Sender: ALEXION PHARMACEUTICALS
  Company Number: EU-AstraZeneca-CH-00753111A

PATIENT
  Age: 84 Year
  Sex: Female

DRUGS (1)
  1. CALQUENCE [Suspect]
     Active Substance: ACALABRUTINIB
     Indication: Chronic lymphocytic leukaemia
     Dosage: 100 MILLIGRAM, Q12H
     Dates: start: 202201, end: 202312

REACTIONS (5)
  - Secondary immunodeficiency [Unknown]
  - Arthralgia [Unknown]
  - Diarrhoea [Unknown]
  - Dizziness [Unknown]
  - COVID-19 [Unknown]
